FAERS Safety Report 23027034 (Version 1)
Quarter: 2023Q4

REPORT INFORMATION
  Report Type: Spontaneous
  Country: US (occurrence: None)
  Receive Date: 20231003
  Receipt Date: 20231003
  Transmission Date: 20240110
  Serious: Yes (Hospitalization)
  Sender: FDA-Public Use
  Company Number: None

PATIENT
  Age: 70 Year
  Sex: Male
  Weight: 54 kg

DRUGS (1)
  1. AVSOLA [Suspect]
     Active Substance: INFLIXIMAB-AXXQ
     Indication: Crohn^s disease
     Dosage: OTHER FREQUENCY : AT WEEK 6;?
     Route: 041
     Dates: start: 20230822, end: 20231003

REACTIONS (9)
  - Flushing [None]
  - Unresponsive to stimuli [None]
  - Snoring [None]
  - Urinary incontinence [None]
  - Muscle tightness [None]
  - Seizure [None]
  - Vomiting [None]
  - Cough [None]
  - Mouth swelling [None]

NARRATIVE: CASE EVENT DATE: 20231003
